FAERS Safety Report 18220726 (Version 2)
Quarter: 2020Q4

REPORT INFORMATION
  Report Type: Spontaneous
  Country: US (occurrence: US)
  Receive Date: 20200902
  Receipt Date: 20201012
  Transmission Date: 20210113
  Serious: No
  Sender: FDA-Public Use
  Company Number: US-ASTRAZENECA-2020SE99912

PATIENT
  Sex: Male

DRUGS (1)
  1. SYMBICORT [Suspect]
     Active Substance: BUDESONIDE\FORMOTEROL FUMARATE DIHYDRATE
     Indication: CHRONIC OBSTRUCTIVE PULMONARY DISEASE
     Dosage: 160/4.5 UG, 2 PUFFS, TWO TIMES A DAY
     Route: 055

REACTIONS (8)
  - Urinary incontinence [Unknown]
  - Device malfunction [Unknown]
  - Drug delivery system issue [Unknown]
  - Dyspnoea [Recovering/Resolving]
  - Product storage error [Unknown]
  - Product packaging quantity issue [Unknown]
  - Pulmonary function test abnormal [Unknown]
  - Incorrect dose administered by device [Unknown]
